FAERS Safety Report 25741268 (Version 1)
Quarter: 2025Q3

REPORT INFORMATION
  Report Type: Spontaneous
  Country: EU (occurrence: EU)
  Receive Date: 20250829
  Receipt Date: 20250829
  Transmission Date: 20251021
  Serious: Yes (Other)
  Sender: NOVO NORDISK
  Company Number: EU-NOVOPROD-1506474

PATIENT
  Sex: Female

DRUGS (1)
  1. OZEMPIC [Suspect]
     Active Substance: SEMAGLUTIDE
     Indication: Product used for unknown indication

REACTIONS (6)
  - Circulatory collapse [Unknown]
  - Vitamin C deficiency [Unknown]
  - Muscle atrophy [Unknown]
  - Weight fluctuation [Unknown]
  - Decreased appetite [Unknown]
  - Weight decreased [Recovering/Resolving]
